FAERS Safety Report 8954311 (Version 1)
Quarter: 2012Q4

REPORT INFORMATION
  Report Type: 
  Country: US (occurrence: US)
  Receive Date: 20121210
  Receipt Date: 20121210
  Transmission Date: 20130627
  Serious: No
  Sender: FDA-Public Use
  Company Number: US-009507513-1211USA012452

PATIENT
  Age: 41 Year
  Sex: Female

DRUGS (3)
  1. LISINOPRIL [Suspect]
     Indication: HYPERTENSION
     Route: 048
  2. ARIPIPRAZOLE [Interacting]
  3. OXITRIPTAN [Interacting]
     Indication: INSOMNIA

REACTIONS (2)
  - Eosinophilic fasciitis [Recovering/Resolving]
  - Drug interaction [Unknown]
